FAERS Safety Report 4899933-1 (Version None)
Quarter: 2006Q1

REPORT INFORMATION
  Report Type: 
  Country: None (occurrence: None)
  Receive Date: 20060203
  Receipt Date: 20050822
  Transmission Date: 20060701
  Serious: Yes (Death, Other)
  Sender: FDA-Public Use
  Company Number: PHBS2005JP12427

PATIENT
  Age: 76 Year
  Sex: Female
  Weight: 47 kg

DRUGS (6)
  1. NIVADIL [Concomitant]
     Indication: ESSENTIAL HYPERTENSION
     Dosage: 8 MG/D
     Route: 048
     Dates: start: 20040801, end: 20050802
  2. TENORMIN [Concomitant]
     Indication: ESSENTIAL HYPERTENSION
     Dosage: 5 MG/D
     Route: 048
     Dates: end: 20050802
  3. APLACE [Concomitant]
     Dosage: 300 MG/D
     Route: 048
     Dates: start: 20040801, end: 20050802
  4. KARIKUROMONE [Concomitant]
     Dosage: 150 MG/D
     Route: 048
     Dates: start: 20040801, end: 20050802
  5. LAMISIL [Suspect]
     Indication: NAIL TINEA
     Dosage: 125 MG, QD
     Route: 048
     Dates: start: 20031101, end: 20050802
  6. SALUMOSIN [Concomitant]
     Dosage: 15 MG/D
     Route: 048
     Dates: start: 20040801, end: 20050802

REACTIONS (13)
  - ALANINE AMINOTRANSFERASE INCREASED [None]
  - ASPARTATE AMINOTRANSFERASE INCREASED [None]
  - BILE DUCT CANCER [None]
  - BILIARY NEOPLASM [None]
  - BLOOD ALKALINE PHOSPHATASE INCREASED [None]
  - BLOOD BILIRUBIN INCREASED [None]
  - BLOOD LACTATE DEHYDROGENASE INCREASED [None]
  - GAMMA-GLUTAMYLTRANSFERASE INCREASED [None]
  - HEPATIC FUNCTION ABNORMAL [None]
  - JAUNDICE [None]
  - LEUKOCYTE ALKALINE PHOSPHATASE INCREASED [None]
  - MALAISE [None]
  - ZINC SULPHATE TURBIDITY INCREASED [None]
